FAERS Safety Report 9278897 (Version 1)
Quarter: 2013Q2

REPORT INFORMATION
  Report Type: Spontaneous
  Country: US (occurrence: US)
  Receive Date: 20130508
  Receipt Date: 20130508
  Transmission Date: 20140414
  Serious: Yes (Death, Hospitalization)
  Sender: FDA-Public Use
  Company Number: US-GLAXOSMITHKLINE-A0774048A

PATIENT
  Age: 63 Year
  Sex: Male
  Weight: 88.6 kg

DRUGS (1)
  1. AVANDIA [Suspect]
     Indication: DIABETES MELLITUS
     Route: 048
     Dates: start: 20000816, end: 20021207

REACTIONS (3)
  - Myocardial infarction [Fatal]
  - Cerebrovascular accident [Unknown]
  - Shock [Fatal]
